FAERS Safety Report 16912769 (Version 1)
Quarter: 2019Q4

REPORT INFORMATION
  Report Type: Spontaneous
  Country: FR (occurrence: FR)
  Receive Date: 20191014
  Receipt Date: 20191014
  Transmission Date: 20200122
  Serious: Yes (Hospitalization)
  Sender: FDA-Public Use
  Company Number: FR-TEVA-2019-FR-1120055

PATIENT
  Age: 23 Year
  Sex: Male

DRUGS (2)
  1. VANCOMYCINE [Suspect]
     Active Substance: VANCOMYCIN
     Indication: FEBRILE INFECTION
     Route: 042
     Dates: start: 20190122, end: 20190202
  2. MEROPENEM TRIHYDRATE [Suspect]
     Active Substance: MEROPENEM
     Indication: FEBRILE INFECTION
     Route: 042
     Dates: start: 20190122, end: 20190204

REACTIONS (1)
  - Drug reaction with eosinophilia and systemic symptoms [Recovered/Resolved]

NARRATIVE: CASE EVENT DATE: 20190202
